FAERS Safety Report 16397965 (Version 1)
Quarter: 2019Q2

REPORT INFORMATION
  Report Type: Report from Study
  Country: JP (occurrence: JP)
  Receive Date: 20190606
  Receipt Date: 20190606
  Transmission Date: 20190711
  Serious: Yes (Other)
  Sender: FDA-Public Use
  Company Number: JP-TEVA-2019-JP-1059209

PATIENT

DRUGS (2)
  1. PREDNISOLONE. [Suspect]
     Active Substance: PREDNISOLONE
     Indication: ENDOCRINE OPHTHALMOPATHY
     Dosage: INITIAL DOSE DEPENDED ON BODY WEIGHT; THE DOSES WERE TAPERED BY 5 MG/WEEK TO 20 MG/DAY
     Route: 048
  2. METHYLPREDNISOLONE. [Suspect]
     Active Substance: METHYLPREDNISOLONE
     Indication: ENDOCRINE OPHTHALMOPATHY
     Dosage: .5 GRAM DAILY; FOR 3 CONSECUTIVE DAYS DURING WEEKS 1-3
     Route: 042

REACTIONS (1)
  - Drug-induced liver injury [Recovering/Resolving]
